FAERS Safety Report 14632276 (Version 2)
Quarter: 2019Q1

REPORT INFORMATION
  Report Type: Spontaneous
  Country: US (occurrence: US)
  Receive Date: 20180313
  Receipt Date: 20190311
  Transmission Date: 20190417
  Serious: No
  Sender: FDA-Public Use
  Company Number: US-ALLERGAN-1809820US

PATIENT
  Sex: Female

DRUGS (3)
  1. VITAMIN D [Concomitant]
     Active Substance: CHOLECALCIFEROL
     Dosage: UNK
     Route: 065
  2. LEXAPRO [Interacting]
     Active Substance: ESCITALOPRAM OXALATE
     Indication: ANXIETY
     Dosage: UNK
     Route: 065
  3. OXYTROL [Suspect]
     Active Substance: OXYBUTYNIN
     Indication: MICTURITION URGENCY
     Dosage: UNK
     Route: 062
     Dates: start: 201802, end: 20180228

REACTIONS (4)
  - Anxiety [Recovered/Resolved]
  - Nervousness [Recovered/Resolved]
  - Drug interaction [Recovered/Resolved]
  - Fatigue [Recovered/Resolved]

NARRATIVE: CASE EVENT DATE: 201802
